FAERS Safety Report 7456563-5 (Version None)
Quarter: 2011Q2

REPORT INFORMATION
  Report Type: 
  Country: None (occurrence: None)
  Receive Date: 20110503
  Receipt Date: 20110427
  Transmission Date: 20111010
  Serious: Yes (Death)
  Sender: FDA-Public Use
  Company Number: JP-PFIZER INC-2010107336

PATIENT
  Age: 42 Year
  Sex: Male

DRUGS (6)
  1. CIPROXAN [Concomitant]
     Indication: MYCOBACTERIUM AVIUM COMPLEX INFECTION
     Dosage: 1500 MG, 2X/DAY
     Dates: start: 20090616
  2. MYCOBUTIN [Concomitant]
     Indication: MYCOBACTERIUM AVIUM COMPLEX INFECTION
     Dosage: 300 MG, 1X/DAY
     Route: 048
     Dates: start: 20090508
  3. AMIKACIN [Concomitant]
     Indication: MYCOBACTERIUM AVIUM COMPLEX INFECTION
     Dosage: 800 MG, 1X/DAY
     Dates: start: 20090616
  4. AZITHROMYCIN [Suspect]
     Indication: MYCOBACTERIUM AVIUM COMPLEX INFECTION
     Dosage: 1200 MG, WEEKLY
     Route: 048
     Dates: start: 20090418, end: 20090508
  5. AZITHROMYCIN [Suspect]
     Dosage: 600 MG, WEEKLY
     Route: 048
     Dates: start: 20090509
  6. EBUTOL [Concomitant]
     Indication: MYCOBACTERIUM AVIUM COMPLEX INFECTION
     Dosage: 750 MG, 1X/DAY
     Route: 048
     Dates: start: 20090508

REACTIONS (1)
  - PROGRESSIVE MULTIFOCAL LEUKOENCEPHALOPATHY [None]
